FAERS Safety Report 11800879 (Version 3)
Quarter: 2016Q2

REPORT INFORMATION
  Report Type: Report from Study
  Country: FR (occurrence: FR)
  Receive Date: 20151204
  Receipt Date: 20160524
  Transmission Date: 20160815
  Serious: Yes (Other)
  Sender: FDA-Public Use
  Company Number: FR-ROCHE-1672531

PATIENT
  Age: 66 Year
  Sex: Male

DRUGS (11)
  1. HYDROCORTISONE. [Concomitant]
     Active Substance: HYDROCORTISONE
  2. CYCLOPHOSPHAMIDE. [Concomitant]
     Active Substance: CYCLOPHOSPHAMIDE
     Dosage: 500 MG/DAY, ORAL, FROM DAY 2 TO DAY 4 AS A PART OF CYCLE 4
     Route: 065
     Dates: start: 20121228, end: 20130324
  3. FLUDARABINE PHOSPHATE. [Concomitant]
     Active Substance: FLUDARABINE PHOSPHATE
     Dosage: 80 MG /D, ORAL, FROM DAY 2 TO DAY 4 AS PART OF 4TH CYCLE.
     Route: 065
     Dates: start: 20121128, end: 20130324
  4. GALVUS [Concomitant]
     Active Substance: VILDAGLIPTIN
  5. LASILIX [Concomitant]
     Active Substance: FUROSEMIDE
  6. ORACILLINE [Concomitant]
     Active Substance: PENICILLIN V
  7. ACICLOVIR [Concomitant]
     Active Substance: ACYCLOVIR
  8. FOLIC ACID. [Concomitant]
     Active Substance: FOLIC ACID
  9. RITUXIMAB [Suspect]
     Active Substance: RITUXIMAB
     Indication: CHRONIC LYMPHOCYTIC LEUKAEMIA
     Dosage: PRE-PHASE DOSING REGIMEN: 250 MG/DAY ON 04/DEC/2012 (DAY -1) AND 05/DEC/2012 (DAY 0); 2000 MG/DAY ON
     Route: 042
     Dates: start: 20121204, end: 20130321
  10. LEVEMIR [Concomitant]
     Active Substance: INSULIN DETEMIR
  11. INEXIUM [Concomitant]
     Active Substance: ESOMEPRAZOLE

REACTIONS (1)
  - Progressive multifocal leukoencephalopathy [Recovering/Resolving]

NARRATIVE: CASE EVENT DATE: 201509
